FAERS Safety Report 5255107-6 (Version None)
Quarter: 2007Q1

REPORT INFORMATION
  Report Type: 
  Country: None (occurrence: None)
  Receive Date: 20070305
  Receipt Date: 20070220
  Transmission Date: 20070707
  Serious: Yes (Other)
  Sender: FDA-Public Use
  Company Number: PHBS2007JP01609

PATIENT
  Age: 7 Year
  Sex: Female

DRUGS (1)
  1. SANDIMMUNE [Suspect]
     Indication: MYELODYSPLASTIC SYNDROME
     Dosage: 40 MG/D
     Route: 042

REACTIONS (4)
  - ALANINE AMINOTRANSFERASE INCREASED [None]
  - BLOOD GLUCOSE INCREASED [None]
  - CONVULSION [None]
  - HYPERMAGNESAEMIA [None]
